FAERS Safety Report 23898178 (Version 1)
Quarter: 2024Q2

REPORT INFORMATION
  Report Type: Spontaneous
  Country: SE (occurrence: SE)
  Receive Date: 20240524
  Receipt Date: 20240524
  Transmission Date: 20240716
  Serious: Yes (Other)
  Sender: FDA-Public Use
  Company Number: None

PATIENT
  Sex: Female

DRUGS (1)
  1. ARIPIPRAZOLE [Suspect]
     Active Substance: ARIPIPRAZOLE
     Indication: Product used for unknown indication
     Dosage: UNK
     Route: 065

REACTIONS (6)
  - Aspiration [Unknown]
  - Weight loss poor [Unknown]
  - Temperature intolerance [Unknown]
  - Enuresis [Recovered/Resolved]
  - Photosensitivity reaction [Recovering/Resolving]
  - Weight increased [Unknown]
